FAERS Safety Report 8909804 (Version 3)
Quarter: 2012Q4

REPORT INFORMATION
  Report Type: 
  Country: US (occurrence: US)
  Receive Date: 20121115
  Receipt Date: 20121206
  Transmission Date: 20130627
  Serious: Yes (Hospitalization)
  Sender: FDA-Public Use
  Company Number: US-PFIZER INC-2012285320

PATIENT
  Age: 49 Year
  Sex: Female
  Weight: 103 kg

DRUGS (3)
  1. LYRICA [Suspect]
     Indication: FIBROMYALGIA
     Dosage: 150 mg, 2x/day
     Route: 048
     Dates: start: 2009
  2. CAPTOPRIL [Concomitant]
     Indication: BLOOD PRESSURE HIGH
     Dosage: 200 mg, 2x/day
  3. COREG [Concomitant]
     Dosage: 12.5 mg, 2x/day

REACTIONS (1)
  - Blood glucose increased [Unknown]
